FAERS Safety Report 14165575 (Version 2)
Quarter: 2017Q4

REPORT INFORMATION
  Report Type: Spontaneous
  Country: BR (occurrence: BR)
  Receive Date: 20171107
  Receipt Date: 20171120
  Transmission Date: 20180321
  Serious: Yes (Death, Life-Threatening, Other)
  Sender: FDA-Public Use
  Company Number: BR-BRACCO-2017BR04904

PATIENT
  Age: 85 Year
  Sex: Male

DRUGS (3)
  1. ATORVASTATIN [Concomitant]
     Active Substance: ATORVASTATIN
     Dosage: 40 MG, UNK
  2. CILOSTAZOL. [Concomitant]
     Active Substance: CILOSTAZOL
     Dosage: 100 UNK, UNK
  3. IOPAMIRON [Suspect]
     Active Substance: IOPAMIDOL
     Indication: ANGIOGRAM
     Dosage: 120 ML, SINGLE
     Route: 042
     Dates: start: 20171025, end: 20171025

REACTIONS (7)
  - Pulmonary embolism [Unknown]
  - Embolism venous [Unknown]
  - Urticaria [Unknown]
  - Cardio-respiratory arrest [Unknown]
  - Dyspnoea [Unknown]
  - Embolism arterial [Unknown]
  - Tachycardia [Unknown]

NARRATIVE: CASE EVENT DATE: 20171025
